FAERS Safety Report 14422117 (Version 4)
Quarter: 2018Q3

REPORT INFORMATION
  Report Type: Report from Study
  Country: US (occurrence: US)
  Receive Date: 20180123
  Receipt Date: 20180824
  Transmission Date: 20181010
  Serious: Yes (Other)
  Sender: FDA-Public Use
  Company Number: US-CONCORDIA PHARMACEUTICALS INC.-GSH201801-000321

PATIENT
  Sex: Male
  Weight: 113.5 kg

DRUGS (3)
  1. PLAQUENIL [Suspect]
     Active Substance: HYDROXYCHLOROQUINE SULFATE
     Indication: RHEUMATOID ARTHRITIS
     Route: 048
     Dates: start: 2013
  2. HUMIRA [Suspect]
     Active Substance: ADALIMUMAB
     Indication: RHEUMATOID ARTHRITIS
     Dosage: 40MG/0.8ML
     Route: 058
     Dates: start: 2015
  3. HUMIRA [Suspect]
     Active Substance: ADALIMUMAB
     Dosage: 40MG/0.8ML
     Route: 058

REACTIONS (19)
  - Rheumatoid arthritis [Not Recovered/Not Resolved]
  - Rash pustular [Recovering/Resolving]
  - Hypoaesthesia [Unknown]
  - Nerve injury [Unknown]
  - Staphylococcal skin infection [Recovered/Resolved]
  - Carpal tunnel syndrome [Not Recovered/Not Resolved]
  - Nodule [Unknown]
  - Mass [Recovering/Resolving]
  - Neuropathy peripheral [Unknown]
  - Influenza [Recovered/Resolved]
  - Cataract [Not Recovered/Not Resolved]
  - Blood cholesterol increased [Unknown]
  - Neck mass [Unknown]
  - Glycosylated haemoglobin increased [Unknown]
  - Skin discolouration [Unknown]
  - Pain in extremity [Not Recovered/Not Resolved]
  - Pain in extremity [Not Recovered/Not Resolved]
  - Staphylococcal skin infection [Not Recovered/Not Resolved]
  - Skin mass [Recovering/Resolving]

NARRATIVE: CASE EVENT DATE: 2017
